FAERS Safety Report 6838283-0 (Version None)
Quarter: 2010Q3

REPORT INFORMATION
  Report Type: 
  Country: None (occurrence: None)
  Receive Date: 20100702
  Receipt Date: 20100622
  Transmission Date: 20110219
  Serious: Yes (Other)
  Sender: FDA-Public Use
  Company Number: 2010-1537

PATIENT
  Age: 26 Year
  Sex: Female
  Weight: 60 kg

DRUGS (3)
  1. SOMATULINE L.P. 120MG (LANREOTIDE AUTOGEL) (LANREOTIDE0 (LANREOTIDE) [Suspect]
     Indication: INSULINOMA
     Dosage: 120 MG (120, 1 IN 28 D), SUBCUTANEOUS- 03/11/2010 INJECTION DELAYED, THEN REDUCED TO 60 MG
     Route: 058
     Dates: start: 20100311
  2. LAMICTAL [Concomitant]
  3. MINIDRIL (EUGYNON) [Concomitant]

REACTIONS (4)
  - GALLBLADDER DISORDER [None]
  - HEPATITIS ACUTE [None]
  - HYPOGLYCAEMIA [None]
  - OFF LABEL USE [None]
